FAERS Safety Report 7356813-X (Version None)
Quarter: 2011Q1

REPORT INFORMATION
  Report Type: 
  Country: None (occurrence: None)
  Receive Date: 20110316
  Receipt Date: 20110309
  Transmission Date: 20110831
  Serious: Yes (Life-Threatening, Hospitalization)
  Sender: FDA-Public Use
  Company Number: TW-ABBOTT-10P-153-0687788-00

PATIENT
  Sex: Male
  Weight: 58 kg

DRUGS (1)
  1. HUMIRA [Suspect]
     Indication: ANKYLOSING SPONDYLITIS
     Dosage: 40 MG/0.8 ML
     Route: 058
     Dates: start: 20100729, end: 20101015

REACTIONS (4)
  - ACUTE HEPATIC FAILURE [None]
  - ADVERSE DRUG REACTION [None]
  - HEPATITIS FULMINANT [None]
  - HEPATITIS B [None]
